FAERS Safety Report 5903103-5 (Version None)
Quarter: 2008Q3

REPORT INFORMATION
  Report Type: 
  Country: None (occurrence: None)
  Receive Date: 20080926
  Receipt Date: 20080917
  Transmission Date: 20090109
  Serious: No
  Sender: FDA-Public Use
  Company Number: 2008-183848-NL

PATIENT
  Sex: Female

DRUGS (1)
  1. NUVARING [Suspect]
     Dosage: DF, NI

REACTIONS (3)
  - IMPLANT SITE FIBROSIS [None]
  - MENORRHAGIA [None]
  - TREATMENT NONCOMPLIANCE [None]
